FAERS Safety Report 6315366-5 (Version None)
Quarter: 2009Q3

REPORT INFORMATION
  Report Type: 
  Country: None (occurrence: None)
  Receive Date: 20090819
  Receipt Date: 20090807
  Transmission Date: 20100115
  Serious: Yes (Other)
  Sender: FDA-Public Use
  Company Number: SE-ROCHE-649157

PATIENT
  Age: 49 Year
  Sex: Female

DRUGS (4)
  1. CELLCEPT [Suspect]
     Indication: GLOMERULONEPHRITIS MEMBRANOUS
     Dosage: DOSING AMT: 1000+750 MG
     Route: 065
     Dates: start: 20080101
  2. APROVEL [Concomitant]
     Dosage: DOSING MAT: 150 MG X 2
  3. IMPUGAN [Concomitant]
  4. ACETAMINOPHEN W/ CODEINE [Concomitant]

REACTIONS (3)
  - ARTHRITIS [None]
  - MUSCLE FATIGUE [None]
  - SYSTEMIC LUPUS ERYTHEMATOSUS [None]
